FAERS Safety Report 4500257-2 (Version None)
Quarter: 2004Q4

REPORT INFORMATION
  Report Type: 
  Country: None (occurrence: None)
  Receive Date: 20041109
  Receipt Date: 20041027
  Transmission Date: 20050328
  Serious: Yes (Hospitalization, Other)
  Sender: FDA-Public Use
  Company Number: 2004241865US

PATIENT
  Age: 56 Year
  Sex: Female
  Weight: 81.6 kg

DRUGS (4)
  1. CELEBREX [Suspect]
     Indication: RHEUMATOID ARTHRITIS
     Dosage: 200 MG, BID
  2. ULTRACET [Concomitant]
  3. ULTRAM [Concomitant]
  4. MIACALCIN [Concomitant]

REACTIONS (8)
  - ABORTION SPONTANEOUS [None]
  - BONE DISORDER [None]
  - DRUG EXPOSURE DURING PREGNANCY [None]
  - HYPERTENSION [None]
  - LOSS OF CONSCIOUSNESS [None]
  - NAUSEA [None]
  - PREGNANCY [None]
  - WEIGHT DECREASED [None]
